FAERS Safety Report 9148428 (Version 1)
Quarter: 2013Q1

REPORT INFORMATION
  Report Type: Spontaneous
  Country: GB (occurrence: GB)
  Receive Date: 20130308
  Receipt Date: 20130308
  Transmission Date: 20140127
  Serious: Yes (Other)
  Sender: FDA-Public Use
  Company Number: PHFR2013GB001538

PATIENT
  Age: 72 Year
  Sex: Female

DRUGS (1)
  1. CLOZARIL [Suspect]
     Indication: SCHIZOPHRENIA
     Dosage: UNK
     Dates: start: 20130123

REACTIONS (7)
  - Urinary tract infection [Unknown]
  - Pollakiuria [Unknown]
  - Body temperature increased [Unknown]
  - Malaise [Unknown]
  - Schizophrenia [Unknown]
  - Confusional state [Unknown]
  - Pallor [Unknown]
